FAERS Safety Report 4865974-3 (Version None)
Quarter: 2005Q4

REPORT INFORMATION
  Report Type: 
  Country: None (occurrence: None)
  Receive Date: 20051226
  Receipt Date: 20051209
  Transmission Date: 20060501
  Serious: Yes (Life-Threatening, Hospitalization, Disabling)
  Sender: FDA-Public Use
  Company Number: PHHO2005JP19317

PATIENT
  Age: 87 Year
  Sex: Female
  Weight: 32 kg

DRUGS (6)
  1. DIOVAN [Suspect]
     Indication: HYPERTENSION
     Dosage: 40 MG, QD
     Route: 048
     Dates: start: 20030324, end: 20030910
  2. DIOVAN [Suspect]
     Dosage: 80 MG, QD
     Dates: start: 20030911, end: 20050211
  3. GASTER D [Concomitant]
     Dates: start: 20050303
  4. BUFFERIN [Suspect]
     Indication: TRANSIENT ISCHAEMIC ATTACK
     Dosage: 81 MG, UNK
     Route: 048
     Dates: start: 20030324, end: 20050211
  5. NEUQUINON [Concomitant]
     Indication: CARDIAC FAILURE
     Dosage: 20 MG, UNK
     Route: 048
     Dates: start: 20030324, end: 20050211
  6. BUP-4 [Concomitant]
     Indication: NEUROGENIC BLADDER
     Dosage: 10 MG, UNK
     Route: 048
     Dates: start: 20030610, end: 20050211

REACTIONS (6)
  - APHASIA [None]
  - CONVULSION [None]
  - DEPRESSED LEVEL OF CONSCIOUSNESS [None]
  - HEMIPLEGIA [None]
  - PUTAMEN HAEMORRHAGE [None]
  - TREATMENT NONCOMPLIANCE [None]
